FAERS Safety Report 6408237-7 (Version None)
Quarter: 2009Q4

REPORT INFORMATION
  Report Type: 
  Country: None (occurrence: None)
  Receive Date: 20091021
  Receipt Date: 20091009
  Transmission Date: 20100525
  Serious: Yes (Hospitalization)
  Sender: FDA-Public Use
  Company Number: SE-PFIZER INC-2009280954

PATIENT
  Age: 86 Year

DRUGS (17)
  1. BLINDED *NO SUBJECT DRUG [Suspect]
     Indication: CARDIAC FAILURE CHRONIC
     Dosage: UNK
     Route: 048
     Dates: start: 20090814, end: 20091009
  2. BLINDED *PLACEBO [Suspect]
     Indication: CARDIAC FAILURE CHRONIC
     Dosage: UNK
     Route: 048
     Dates: start: 20090814, end: 20091009
  3. BLINDED EPLERENONE [Suspect]
     Indication: CARDIAC FAILURE CHRONIC
     Dosage: UNK
     Route: 048
     Dates: start: 20090814, end: 20091009
  4. XALATAN [Concomitant]
     Dosage: UNK
     Route: 061
     Dates: start: 19880101
  5. AZOPT [Concomitant]
     Dosage: UNK
     Route: 061
     Dates: start: 20050614
  6. KALCIPOS-D [Concomitant]
     Dosage: UNK
     Route: 048
     Dates: start: 20060502
  7. ENALAPRIL [Concomitant]
     Dosage: UNK
     Route: 048
     Dates: start: 20070912, end: 20091009
  8. WARFARIN [Concomitant]
     Dosage: UNK
     Route: 048
     Dates: start: 20070912, end: 20091009
  9. CITALOPRAM [Concomitant]
     Dosage: UNK
     Route: 048
     Dates: start: 20080602
  10. BISOPROLOL [Concomitant]
     Dosage: UNK
     Route: 048
     Dates: start: 20080710
  11. BUDESONIDE [Concomitant]
     Dosage: UNK
     Route: 055
     Dates: start: 20090409
  12. FORMOTEROL [Concomitant]
     Dosage: UNK
     Route: 055
     Dates: start: 20090409
  13. TERBUTALINE [Concomitant]
     Dosage: UNK
     Route: 055
     Dates: start: 20090409
  14. FUROSEMIDE [Concomitant]
     Dosage: UNK
     Route: 048
     Dates: start: 20090409
  15. MIRTAZAPINE [Concomitant]
     Dosage: UNK
     Route: 048
     Dates: start: 20090623
  16. PARACETAMOL [Concomitant]
     Dosage: UNK
     Route: 048
  17. OXYCODONE [Concomitant]
     Dosage: UNK
     Route: 048

REACTIONS (3)
  - CARDIAC FAILURE [None]
  - CONDITION AGGRAVATED [None]
  - RENAL FAILURE [None]
